FAERS Safety Report 9627108 (Version 1)
Quarter: 2013Q4

REPORT INFORMATION
  Report Type: Spontaneous
  Country: US (occurrence: US)
  Receive Date: 20131016
  Receipt Date: 20131016
  Transmission Date: 20140711
  Serious: No
  Sender: FDA-Public Use
  Company Number: US-BAYER-2013-122898

PATIENT
  Age: 62 Year
  Sex: Female

DRUGS (2)
  1. ALEVE CAPLET [Suspect]
  2. SUTENT [Concomitant]

REACTIONS (1)
  - Drug hypersensitivity [None]
